FAERS Safety Report 6839938-4 (Version None)
Quarter: 2010Q3

REPORT INFORMATION
  Report Type: 
  Country: None (occurrence: None)
  Receive Date: 20100709
  Receipt Date: 20100624
  Transmission Date: 20110219
  Serious: Yes (Death, Hospitalization)
  Sender: FDA-Public Use
  Company Number: 2010002537

PATIENT
  Age: 70 Year
  Sex: Female
  Weight: 58.3 kg

DRUGS (3)
  1. ERLOTINIB (ERLOTINIB) (TABLET) (ERLOTINIB) [Suspect]
     Indication: ADENOCARCINOMA PANCREAS
     Dosage: (100 MG, QD), ORAL
     Route: 048
     Dates: start: 20100420, end: 20100613
  2. GEMCITABINE [Suspect]
     Indication: ADENOCARCINOMA PANCREAS
     Dosage: (1000 MG/M2, DAYS 1, 8 AND 15), INTRAVENOUS
     Route: 042
     Dates: start: 20100420, end: 20100526
  3. IMC-A12 [Suspect]
     Indication: ADENOCARCINOMA PANCREAS
     Dosage: (6 MG/KG, DAYS 1, 8, 15 AND 22), INTRAVENOUS
     Route: 042
     Dates: start: 20100420, end: 20100609

REACTIONS (5)
  - ABDOMINAL PAIN [None]
  - DEEP VEIN THROMBOSIS [None]
  - EMBOLISM ARTERIAL [None]
  - TUMOUR PAIN [None]
  - WHITE BLOOD CELL COUNT INCREASED [None]
